FAERS Safety Report 15632200 (Version 2)
Quarter: 2018Q4

REPORT INFORMATION
  Report Type: Spontaneous
  Country: US (occurrence: US)
  Receive Date: 20181119
  Receipt Date: 20181228
  Transmission Date: 20190205
  Serious: Yes (Hospitalization, Other)
  Sender: FDA-Public Use
  Company Number: US-IMPAX LABORATORIES, LLC-2018-IPXL-03787

PATIENT
  Age: 71 Year
  Sex: Female

DRUGS (15)
  1. LEVETIRACETAM. [Concomitant]
     Active Substance: LEVETIRACETAM
     Dosage: 2.5 GRAM, BID
     Route: 042
  2. DIVALPROEX SODIUM ER [Suspect]
     Active Substance: DIVALPROEX SODIUM
     Indication: SEIZURE
     Dosage: 1100 MILLIGRAM, SINGLE
     Route: 042
     Dates: start: 20100927, end: 20100927
  3. DEXAMETHASONE. [Concomitant]
     Active Substance: DEXAMETHASONE
     Indication: OEDEMA
     Dosage: 4 MILLIGRAM, EVERY 6HR
     Route: 042
  4. DEXAMETHASONE. [Concomitant]
     Active Substance: DEXAMETHASONE
     Dosage: 2 MILLIGRAM, QD
     Route: 065
  5. WARFARIN [Interacting]
     Active Substance: WARFARIN
     Dosage: 5 MILLIGRAM ON SATURDAY, SUNDAY
     Route: 048
     Dates: start: 20100930
  6. DIVALPROEX SODIUM ER [Interacting]
     Active Substance: DIVALPROEX SODIUM
     Dosage: 500 MILLIGRAM, BID
     Route: 042
     Dates: start: 20100927, end: 20100927
  7. DIVALPROEX SODIUM ER [Interacting]
     Active Substance: DIVALPROEX SODIUM
     Dosage: 250 MILLIGRAM, EVERY 6HR
     Dates: start: 20100928
  8. WARFARIN [Interacting]
     Active Substance: WARFARIN
     Dosage: 0.75 MILLIGRAM
     Dates: start: 20100927, end: 201009
  9. LEVETIRACETAM. [Concomitant]
     Active Substance: LEVETIRACETAM
     Indication: SEIZURE
     Dosage: UNK, LOADING DOSE
     Route: 042
  10. LEVETIRACETAM. [Concomitant]
     Active Substance: LEVETIRACETAM
     Dosage: 1 GRAM
     Route: 042
  11. PRAVASTATIN. [Concomitant]
     Active Substance: PRAVASTATIN
     Indication: PRODUCT USED FOR UNKNOWN INDICATION
     Dosage: 20 MILLIGRAM, QD
     Route: 048
  12. FISH OIL [Concomitant]
     Active Substance: FISH OIL
     Indication: PRODUCT USED FOR UNKNOWN INDICATION
     Dosage: UNK, ONE CAP
     Route: 065
  13. MIDAZOLAM [Concomitant]
     Active Substance: MIDAZOLAM HYDROCHLORIDE
     Indication: FOCAL DYSCOGNITIVE SEIZURES
     Dosage: 3 MILLIGRAM
     Route: 042
  14. DIVALPROEX SODIUM ER [Interacting]
     Active Substance: DIVALPROEX SODIUM
     Dosage: 500 MILLIGRAM, BID
     Route: 042
     Dates: start: 20100928, end: 20100928
  15. WARFARIN [Interacting]
     Active Substance: WARFARIN
     Indication: THROMBOSIS PROPHYLAXIS
     Dosage: 2.5 MILLIGRAM, ON MONDAY,TUESDAY, WEDNESDAY, THURSDAY, FRIDAY
     Route: 048
     Dates: start: 20100926, end: 20100926

REACTIONS (4)
  - International normalised ratio increased [Unknown]
  - Focal dyscognitive seizures [Recovered/Resolved]
  - Drug interaction [Recovered/Resolved]
  - Intracranial tumour haemorrhage [Unknown]
